FAERS Safety Report 9403686 (Version 1)
Quarter: 2013Q3

REPORT INFORMATION
  Report Type: Spontaneous
  Country: US (occurrence: None)
  Receive Date: 20130715
  Receipt Date: 20130715
  Transmission Date: 20140515
  Serious: Yes (Hospitalization)
  Sender: FDA-Public Use
  Company Number: None

PATIENT
  Age: 55 Year
  Sex: Female
  Weight: 60.1 kg

DRUGS (1)
  1. HYDROCHLOROTHIAZIDE [Suspect]
     Dates: start: 20130425

REACTIONS (1)
  - Hypokalaemia [None]
